FAERS Safety Report 6477433-5 (Version None)
Quarter: 2009Q4

REPORT INFORMATION
  Report Type: 
  Country: None (occurrence: None)
  Receive Date: 20091207
  Receipt Date: 20091106
  Transmission Date: 20100525
  Serious: Yes (Death)
  Sender: FDA-Public Use
  Company Number: AU-SANOFI-AVENTIS-2009SA000349

PATIENT

DRUGS (1)
  1. ENOXAPARIN SODIUM [Suspect]

REACTIONS (2)
  - POST PROCEDURAL PULMONARY EMBOLISM [None]
  - PULMONARY EMBOLISM [None]
